FAERS Safety Report 16469477 (Version 3)
Quarter: 2019Q3

REPORT INFORMATION
  Report Type: Not Available
  Country: US (occurrence: US)
  Receive Date: 20190624
  Receipt Date: 20190808
  Transmission Date: 20191004
  Serious: No
  Sender: FDA-Public Use
  Company Number: US-NEUROCRINE BIOSCIENCES INC.-2019NBI01577

PATIENT
  Age: 72 Year
  Sex: Female

DRUGS (2)
  1. INGREZZA [Suspect]
     Active Substance: VALBENAZINE
     Indication: TARDIVE DYSKINESIA
     Route: 048
     Dates: start: 20190314, end: 20190321
  2. INGREZZA [Suspect]
     Active Substance: VALBENAZINE
     Route: 048
     Dates: start: 20190322, end: 20190716

REACTIONS (4)
  - Depressed mood [Unknown]
  - Tremor [Unknown]
  - Therapeutic product effect decreased [None]
  - Fatigue [Unknown]

NARRATIVE: CASE EVENT DATE: 2019
